FAERS Safety Report 16588502 (Version 2)
Quarter: 2019Q3

REPORT INFORMATION
  Report Type: Spontaneous
  Country: FR (occurrence: FR)
  Receive Date: 20190718
  Receipt Date: 20190730
  Transmission Date: 20191004
  Serious: Yes (Hospitalization, Other)
  Sender: FDA-Public Use
  Company Number: FR-AUROBINDO-AUR-APL-2019-039915

PATIENT

DRUGS (10)
  1. PANTOPRAZOLE MYLAN PHARMA [Suspect]
     Active Substance: PANTOPRAZOLE
     Indication: DUODENAL ULCER
     Dosage: 40 MILLIGRAM, ONCE A DAY
     Route: 048
     Dates: start: 20190213
  2. AMLODIPINE ARROW 5 MG [Suspect]
     Active Substance: AMLODIPINE BESYLATE
     Indication: HYPERTENSION
     Dosage: 5 MILLIGRAM, ONCE A DAY (1-0-0)
     Route: 048
     Dates: start: 20190223
  3. FUMAFER [Suspect]
     Active Substance: FERROUS FUMARATE
     Indication: IRON DEFICIENCY ANAEMIA
     Dosage: 198 MILLIGRAM, ONCE A DAY (1-1-1)
     Route: 048
     Dates: start: 20190429
  4. CLOPIDOGREL [Suspect]
     Active Substance: CLOPIDOGREL BISULFATE
     Indication: CEREBROVASCULAR ACCIDENT
     Dosage: 75 MILLIGRAM, ONCE A DAY
     Route: 048
     Dates: start: 20190408
  5. ZYMAD [Suspect]
     Active Substance: CHOLECALCIFEROL
     Indication: VITAMIN SUPPLEMENTATION
     Dosage: 80000 [IU] 14 DAY
     Route: 048
     Dates: start: 20190330
  6. DOLIPRANE [Concomitant]
     Active Substance: ACETAMINOPHEN
     Indication: PYREXIA
     Dosage: SI BESOIN (MAX 6/JOUR)
     Route: 048
     Dates: end: 20190516
  7. FUROSEMIDE ARROW 40 MG TABLETS [Suspect]
     Active Substance: FUROSEMIDE
     Indication: OEDEMA
     Dosage: 40 MILLIGRAM, ONCE A DAY (1-0-0)
     Route: 048
     Dates: start: 20190226
  8. LOVENOX [Suspect]
     Active Substance: ENOXAPARIN SODIUM
     Indication: THROMBOSIS
     Dosage: 4000 INTERNATIONAL UNIT, ONCE A DAY
     Route: 057
     Dates: start: 20190223
  9. FINASTERIDE ARROW LAB 5MG FILM COATED TABLETS [Suspect]
     Active Substance: FINASTERIDE
     Indication: BENIGN PROSTATIC HYPERPLASIA
     Dosage: 5 MILLIGRAM, ONCE A DAY (1-0-0)
     Route: 048
     Dates: start: 20190213
  10. REFRESH CELLUVISC [Concomitant]
     Active Substance: CARBOXYMETHYLCELLULOSE SODIUM
     Indication: DRY EYE
     Dosage: 8 DOSAGE FORM, ONCE A DAY (2-2-2-2)
     Route: 047

REACTIONS (3)
  - Hepatocellular injury [Recovered/Resolved]
  - Hepatitis [Recovered/Resolved]
  - Cholestasis [Recovering/Resolving]

NARRATIVE: CASE EVENT DATE: 20190501
